FAERS Safety Report 6475082-6 (Version None)
Quarter: 2009Q4

REPORT INFORMATION
  Report Type: 
  Country: None (occurrence: None)
  Receive Date: 20091204
  Receipt Date: 20090326
  Transmission Date: 20100525
  Serious: Yes (Hospitalization)
  Sender: FDA-Public Use
  Company Number: JP-ELI_LILLY_AND_COMPANY-JP200904000602

PATIENT
  Sex: Female
  Weight: 40.7 kg

DRUGS (12)
  1. RALOXIFENE HYDROCHLORIDE [Suspect]
     Indication: OSTEOPOROSIS POSTMENOPAUSAL
     Dosage: 60 MG, DAILY (1/D)
     Route: 048
     Dates: start: 20050226
  2. RINLAXER [Concomitant]
     Indication: CERVICOBRACHIAL SYNDROME
     Dosage: 500 MG, DAILY (1/D)
     Route: 048
     Dates: start: 20041022
  3. OSUTIDINE [Concomitant]
     Indication: OSTEOPOROSIS POSTMENOPAUSAL
     Dosage: 10 IU, DAILY (1/D)
     Route: 030
     Dates: start: 20041027
  4. ALFAROL [Concomitant]
     Indication: OSTEOPOROSIS POSTMENOPAUSAL
     Dosage: 1 UG, DAILY (1/D)
     Route: 048
     Dates: start: 20041105
  5. DIOVAN [Concomitant]
     Indication: HYPERTENSION
     Dosage: 80 MG, DAILY (1/D)
     Route: 048
     Dates: start: 20041217
  6. UBRETID [Concomitant]
     Indication: NEUROGENIC BLADDER
     Dosage: 10 MG, DAILY (1/D)
     Route: 048
     Dates: start: 20050105
  7. MERISLON [Concomitant]
     Indication: DIZZINESS
     Dosage: 12 MG, DAILY (1/D)
     Route: 048
  8. TAKEPRON [Concomitant]
     Indication: GASTRITIS
     Dosage: 15 MG, DAILY (1/D)
     Route: 048
     Dates: start: 20050909
  9. SHAKUYAKUKANZOUTOU [Concomitant]
     Indication: MUSCLE SPASMS
     Dosage: 2.5 G, DAILY (1/D)
     Route: 048
     Dates: start: 20051118, end: 20060613
  10. SHAKUYAKUKANZOUTOU [Concomitant]
     Dosage: 5 G, DAILY (1/D)
     Route: 048
     Dates: start: 20060613
  11. CLARITIN [Concomitant]
     Indication: RHINITIS ALLERGIC
     Dosage: 10 MG, DAILY (1/D)
     Route: 048
     Dates: start: 20060112
  12. TRAVELMIN [Concomitant]
     Indication: DIZZINESS
     Dosage: 2 D/F, DAILY (1/D)
     Route: 048
     Dates: start: 20050921

REACTIONS (1)
  - GASTRIC CANCER [None]
